FAERS Safety Report 13153552 (Version 2)
Quarter: 2017Q2

REPORT INFORMATION
  Report Type: Spontaneous
  Country: US (occurrence: US)
  Receive Date: 20170126
  Receipt Date: 20170417
  Transmission Date: 20170830
  Serious: Yes (Hospitalization, Other)
  Sender: FDA-Public Use
  Company Number: US-ENDO PHARMACEUTICALS INC-2017-000426

PATIENT
  Age: 72 Year
  Sex: Male
  Weight: 74.83 kg

DRUGS (9)
  1. TESTIM [Suspect]
     Active Substance: TESTOSTERONE
     Indication: ANDROGEN REPLACEMENT THERAPY
     Dosage: UNK, UNKNOWN
     Route: 062
     Dates: start: 20070802, end: 20151222
  2. SYNTHROID [Concomitant]
     Active Substance: LEVOTHYROXINE SODIUM
     Indication: THYROID DISORDER
     Dosage: UNK UNKNOWN, UNKNOWN
     Route: 065
     Dates: start: 20120513
  3. DIGOXIN. [Concomitant]
     Active Substance: DIGOXIN
     Indication: HEART RATE INCREASED
     Dosage: UNK UNKNOWN, UNKNOWN
     Route: 065
     Dates: start: 20120513
  4. LIPITOR [Concomitant]
     Active Substance: ATORVASTATIN CALCIUM
     Indication: DYSLIPIDAEMIA
     Dosage: UNK UNKNOWN, UNKNOWN
     Route: 065
     Dates: start: 20010904
  5. ANDROGEL [Suspect]
     Active Substance: TESTOSTERONE
     Indication: PRODUCT USED FOR UNKNOWN INDICATION
     Dosage: UNK UNKNOWN, UNKNOWN
     Route: 065
  6. KETOCONAZOLE. [Concomitant]
     Active Substance: KETOCONAZOLE
     Indication: SKIN DISORDER
     Dosage: UNK UNKNOWN, UNKNOWN
     Route: 065
     Dates: start: 20090402
  7. TRAMADOL. [Concomitant]
     Active Substance: TRAMADOL
     Indication: INFLAMMATION
     Dosage: UNK UNKNOWN, UNKNOWN
     Route: 065
     Dates: start: 20080108
  8. RAPAFLO [Concomitant]
     Active Substance: SILODOSIN
     Indication: URINARY TRACT DISORDER
     Dosage: UNK UNKNOWN, UNKNOWN
     Route: 065
     Dates: start: 20120207
  9. LASIX [Concomitant]
     Active Substance: FUROSEMIDE
     Indication: DIURETIC THERAPY
     Dosage: UNK UNKNOWN, UNKNOWN
     Route: 065
     Dates: start: 20010826

REACTIONS (7)
  - Hypertension [Unknown]
  - Cardiac failure congestive [Not Recovered/Not Resolved]
  - Hypothyroidism [Unknown]
  - Myocardial infarction [Not Recovered/Not Resolved]
  - Coronary artery disease [Unknown]
  - Cardiac ventricular thrombosis [Not Recovered/Not Resolved]
  - Arteriosclerosis [Unknown]

NARRATIVE: CASE EVENT DATE: 200712
